FAERS Safety Report 5334140-X (Version None)
Quarter: 2007Q2

REPORT INFORMATION
  Report Type: 
  Country: None (occurrence: None)
  Receive Date: 20070525
  Receipt Date: 20070518
  Transmission Date: 20071010
  Serious: Yes (Other)
  Sender: FDA-Public Use
  Company Number: US-BAYER-200711614BCC

PATIENT
  Sex: Male

DRUGS (1)
  1. EXTRA STRENGTH BAYER BACK + BODY [Suspect]
     Indication: DRUG USE FOR UNKNOWN INDICATION
     Dosage: UNIT DOSE: 500 MG
     Route: 048

REACTIONS (2)
  - DEAFNESS [None]
  - TINNITUS [None]
